FAERS Safety Report 13101422 (Version 1)
Quarter: 2017Q1

REPORT INFORMATION
  Report Type: Spontaneous
  Country: US (occurrence: US)
  Receive Date: 20170110
  Receipt Date: 20170110
  Transmission Date: 20170428
  Serious: Yes (Other)
  Sender: FDA-Public Use
  Company Number: None

PATIENT
  Age: 65 Year
  Sex: Female
  Weight: 69.92 kg

DRUGS (4)
  1. ALBUTEROL. [Concomitant]
     Active Substance: ALBUTEROL
  2. LEXAPRO [Concomitant]
     Active Substance: ESCITALOPRAM OXALATE
  3. PREDNISONE. [Suspect]
     Active Substance: PREDNISONE
     Indication: HEADACHE
     Dosage: 3 ON 1ST DAY-3RD DAY, 2 ON 4-5 DAY 1 BY MOUTH FOR 3 DAYS BY MOUTH?
     Route: 048
     Dates: start: 20160707, end: 20160715
  4. TYLENOL [Concomitant]
     Active Substance: ACETAMINOPHEN

REACTIONS (16)
  - Rash macular [None]
  - Somnolence [None]
  - Fatigue [None]
  - Myalgia [None]
  - Alopecia [None]
  - Eye pain [None]
  - Weight decreased [None]
  - Memory impairment [None]
  - Negative thoughts [None]
  - Asthenia [None]
  - Depression [None]
  - Headache [None]
  - Vision blurred [None]
  - Nervousness [None]
  - Aggression [None]
  - Nausea [None]

NARRATIVE: CASE EVENT DATE: 20160707
